FAERS Safety Report 9163278 (Version 1)
Quarter: 2013Q1

REPORT INFORMATION
  Report Type: Spontaneous
  Country: US (occurrence: None)
  Receive Date: 20130222
  Receipt Date: 20130222
  Transmission Date: 20140127
  Serious: Yes (Other)
  Sender: FDA-Public Use
  Company Number: ACO_20296_2010

PATIENT
  Age: 39 Year
  Sex: Female

DRUGS (7)
  1. INDERAL (PROPRANOLOL HYDROCHLORIDE) [Concomitant]
  2. AMPYRA [Suspect]
     Indication: GAIT DISTURBANCE
     Dates: start: 201009, end: 201010
  3. AVONEX (INTERFERON BETA-1A) [Concomitant]
  4. VESICARE (SOLIFENACIN SUCCINATE) [Concomitant]
  5. AMBIEN (ZOLPIDEM TARTRATE) [Concomitant]
  6. CLOZAPINE (CLOZAPINE) [Concomitant]
  7. AMITRIPTYLINE (AMITRIPTYLINE) [Concomitant]

REACTIONS (1)
  - Convulsion [None]
